FAERS Safety Report 24752988 (Version 1)
Quarter: 2024Q4

REPORT INFORMATION
  Report Type: Spontaneous
  Country: US (occurrence: US)
  Receive Date: 20241219
  Receipt Date: 20241219
  Transmission Date: 20250115
  Serious: No
  Sender: B BRAUN
  Company Number: US-B.Braun Medical Inc.-2167391

PATIENT
  Sex: Male

DRUGS (1)
  1. CEFOXITIN AND DEXTROSE [Suspect]
     Active Substance: CEFOXITIN SODIUM

REACTIONS (1)
  - Drug ineffective [Unknown]
